FAERS Safety Report 5999755-4 (Version None)
Quarter: 2008Q4

REPORT INFORMATION
  Report Type: 
  Country: None (occurrence: None)
  Receive Date: 20081215
  Receipt Date: 20081202
  Transmission Date: 20090506
  Serious: Yes (Other)
  Sender: FDA-Public Use
  Company Number: US-ROCHE-587072

PATIENT
  Sex: Female
  Weight: 60.8 kg

DRUGS (3)
  1. CAPECITABINE [Suspect]
     Indication: BREAST CANCER
     Dosage: OTHER FORM: PILL
     Route: 048
     Dates: start: 20080716, end: 20080917
  2. AVASTIN [Concomitant]
     Route: 042
     Dates: start: 20080716
  3. AVASTIN [Concomitant]
     Dosage: LOWERED DOSE
     Route: 042

REACTIONS (1)
  - DISEASE PROGRESSION [None]
